FAERS Safety Report 5797135-8 (Version None)
Quarter: 2008Q3

REPORT INFORMATION
  Report Type: 
  Country: None (occurrence: None)
  Receive Date: 20080701
  Receipt Date: 20080619
  Transmission Date: 20090109
  Serious: Yes (Hospitalization, Other)
  Sender: FDA-Public Use
  Company Number: PHHY2008JP08403

PATIENT
  Age: 36 Year
  Sex: Female

DRUGS (4)
  1. NEORAL [Suspect]
     Indication: RENAL TRANSPLANT
     Dosage: 100 MG/DAY
     Route: 048
     Dates: start: 20070601
  2. PREDNISOLONE [Suspect]
     Indication: RENAL TRANSPLANT
     Dosage: 20 MG/DAY
     Dates: start: 20070601
  3. BREDININ [Concomitant]
  4. MYCOPHENOLATE MOFETIL [Concomitant]
     Indication: RENAL TRANSPLANT
     Dosage: 100 MG
     Route: 048

REACTIONS (1)
  - GASTROINTESTINAL HAEMORRHAGE [None]
